FAERS Safety Report 9648464 (Version 1)
Quarter: 2013Q4

REPORT INFORMATION
  Report Type: Spontaneous
  Country: US (occurrence: None)
  Receive Date: 20131025
  Receipt Date: 20131025
  Transmission Date: 20140711
  Serious: Yes (Hospitalization)
  Sender: FDA-Public Use
  Company Number: None

PATIENT
  Age: 42 Year
  Sex: Male
  Weight: 131.54 kg

DRUGS (17)
  1. XARELTO [Suspect]
     Indication: FACTOR V LEIDEN MUTATION
     Route: 048
     Dates: start: 20131015, end: 20131022
  2. BI-PAP [Concomitant]
  3. ISOSORBIDE MONONITRATE [Concomitant]
  4. SPIRONOLACTONE [Concomitant]
  5. CARVEDILOL [Concomitant]
  6. CRESTOR [Concomitant]
  7. DIGOXIN [Concomitant]
  8. REQUIP [Concomitant]
  9. TORSEMIDE [Concomitant]
  10. SEROQUEL [Concomitant]
  11. LISINOPRIL [Concomitant]
  12. OMEPRAZOLE [Concomitant]
  13. LYRICA [Concomitant]
  14. WARFARIN [Concomitant]
  15. MIRTAZAPINE [Concomitant]
  16. ONDANSETRON [Concomitant]
  17. ASPIRIN [Concomitant]

REACTIONS (1)
  - Blood glucose increased [None]
